FAERS Safety Report 10680758 (Version 2)
Quarter: 2014Q4

REPORT INFORMATION
  Report Type: Spontaneous
  Country: US (occurrence: US)
  Receive Date: 20141229
  Receipt Date: 20141229
  Transmission Date: 20150529
  Serious: No
  Sender: FDA-Public Use
  Company Number: US-SANOFI-AVENTIS-2012SA059443

PATIENT
  Age: 89 Year
  Sex: Female
  Weight: 74.3 kg

DRUGS (3)
  1. PLAVIX [Suspect]
     Active Substance: CLOPIDOGREL BISULFATE
     Indication: CEREBROVASCULAR ACCIDENT
     Route: 065
  2. IRON [Concomitant]
     Active Substance: IRON
  3. PLAVIX [Suspect]
     Active Substance: CLOPIDOGREL BISULFATE
     Indication: CEREBROVASCULAR ACCIDENT
     Route: 048
     Dates: start: 2009

REACTIONS (5)
  - Contusion [Recovered/Resolved]
  - Hearing impaired [Unknown]
  - Skin mass [Not Recovered/Not Resolved]
  - Faeces discoloured [Unknown]
  - Occult blood [Recovered/Resolved]

NARRATIVE: CASE EVENT DATE: 201208
